FAERS Safety Report 8007383-4 (Version None)
Quarter: 2011Q4

REPORT INFORMATION
  Report Type: 
  Country: None (occurrence: None)
  Receive Date: 20111227
  Receipt Date: 20111220
  Transmission Date: 20120403
  Serious: Yes (Hospitalization, Other)
  Sender: FDA-Public Use
  Company Number: AU-PFIZER INC-2011268620

PATIENT
  Age: 78 Year
  Sex: Male
  Weight: 96.8 kg

DRUGS (6)
  1. WARFARIN SODIUM [Concomitant]
     Dosage: 1 MG AT VARIABLE DOSE
     Route: 048
  2. EZETIMIBE [Concomitant]
     Dosage: 10MG DAILY
     Route: 048
  3. ELOCON [Concomitant]
     Dosage: 1% CREAM DAILY
     Route: 061
  4. LYRICA [Suspect]
     Indication: POST HERPETIC NEURALGIA
     Dosage: 75MG DAILY
     Route: 048
     Dates: start: 20100901
  5. ATACAND [Concomitant]
     Dosage: 8 MG, IN THE MORNING
     Route: 048
  6. CARVEDILOL [Concomitant]
     Dosage: 6.25 MG, 2X/DAY
     Route: 048

REACTIONS (5)
  - BRADYCARDIA [None]
  - SYNCOPE [None]
  - DIZZINESS [None]
  - CEREBROVASCULAR ACCIDENT [None]
  - RENAL IMPAIRMENT [None]
